FAERS Safety Report 6902780-X (Version None)
Quarter: 2010Q3

REPORT INFORMATION
  Report Type: 
  Country: None (occurrence: None)
  Receive Date: 20100803
  Receipt Date: 20080725
  Transmission Date: 20110219
  Serious: Yes (Other)
  Sender: FDA-Public Use
  Company Number: US-PFIZER INC-2008063008

PATIENT
  Sex: Male

DRUGS (4)
  1. LYRICA [Suspect]
     Indication: PHANTOM PAIN
     Dosage: EVERYDAY
     Route: 048
     Dates: start: 20070101
  2. LYRICA [Suspect]
     Indication: FIBROMYALGIA
  3. ALCOHOL [Suspect]
  4. ANALGESICS [Concomitant]
     Route: 048

REACTIONS (5)
  - ABNORMAL BEHAVIOUR [None]
  - ALCOHOL INTERACTION [None]
  - ALCOHOL USE [None]
  - DRUG DOSE OMISSION [None]
  - LOSS OF CONSCIOUSNESS [None]
